FAERS Safety Report 21631257 (Version 1)
Quarter: 2022Q4

REPORT INFORMATION
  Report Type: Spontaneous
  Country: GB (occurrence: GB)
  Receive Date: 20221123
  Receipt Date: 20221123
  Transmission Date: 20230113
  Serious: Yes (Life-Threatening, Other)
  Sender: FDA-Public Use
  Company Number: GB-MHRA-MED-202211121503438080-BZDVM

PATIENT

DRUGS (2)
  1. ZONISAMIDE [Suspect]
     Active Substance: ZONISAMIDE
     Indication: Frontal lobe epilepsy
     Dosage: 50 MG, QD (50MG; ON)
     Dates: start: 2022
  2. ZONISAMIDE [Suspect]
     Active Substance: ZONISAMIDE
     Dosage: (DOSE WAS REDUCED)

REACTIONS (1)
  - Gastrointestinal haemorrhage [Recovered/Resolved]

NARRATIVE: CASE EVENT DATE: 20220101
